FAERS Safety Report 8561721-2 (Version None)
Quarter: 2012Q3

REPORT INFORMATION
  Report Type: 
  Country: None (occurrence: None)
  Receive Date: 20120802
  Receipt Date: 20120724
  Transmission Date: 20120928
  Serious: Yes (Death, Hospitalization, Other)
  Sender: FDA-Public Use
  Company Number: DE-BAXTER-2012BAX010598

PATIENT
  Sex: Male
  Weight: 64 kg

DRUGS (27)
  1. FORMOTEROL FUMARATE [Concomitant]
     Route: 065
  2. DOMPERIDON [Concomitant]
     Route: 048
  3. SIMVASTATIN [Concomitant]
     Route: 048
  4. METOCLOPRAMIDE [Concomitant]
     Route: 048
  5. RENVELA [Concomitant]
     Route: 048
  6. TAMOXIFEN CITRATE [Concomitant]
     Route: 048
  7. DIPYRONE TAB [Concomitant]
  8. FERRLECIT [Concomitant]
  9. PASPERTIN [Concomitant]
     Dosage: 10MG/2ML
  10. DEKRISTOL [Concomitant]
     Route: 048
  11. BUPRENORPHINE HCL [Concomitant]
     Route: 060
  12. OMEPRAZOLE [Concomitant]
     Route: 048
  13. ARANESP [Concomitant]
  14. MOVIPREP [Concomitant]
     Route: 048
  15. FUROSEMIDE [Concomitant]
     Route: 048
  16. THEOPHYLLINE [Concomitant]
     Route: 048
  17. SPIRIVA [Concomitant]
     Route: 048
  18. LAXOBERAL [Concomitant]
     Route: 048
  19. FLUPIRTINE MALEATE [Concomitant]
     Route: 048
  20. ASPIRIN [Concomitant]
     Route: 048
  21. TRANSTEC PRO [Concomitant]
  22. PHYSIONEAL 40 GLUCOSE 3,86 % W/V 38,6 MG/ML PERITONEALDIALYSELOSUNG [Suspect]
     Route: 033
     Dates: start: 20030919, end: 20100706
  23. PHYSIONEAL 40 GLUCOSE 2,27 % W/V 22,7 MG/ML PERITONEALDIALYSELOSUNG [Suspect]
     Route: 033
     Dates: start: 20030919, end: 20100706
  24. METOPROLOL TARTRATE [Concomitant]
     Route: 048
  25. FORTIMEL COMPACT CAPPUCCI [Concomitant]
  26. EXTRANEAL [Suspect]
     Route: 033
     Dates: start: 20030919, end: 20100706
  27. VITARENAL [Concomitant]
     Route: 048

REACTIONS (9)
  - SCLEROSING ENCAPSULATING PERITONITIS [None]
  - ILEUS [None]
  - CACHEXIA [None]
  - SEPSIS [None]
  - LUNG DISORDER [None]
  - HIATUS HERNIA [None]
  - INFLAMMATION [None]
  - DEATH [None]
  - GASTROOESOPHAGEAL REFLUX DISEASE [None]
